FAERS Safety Report 21274846 (Version 1)
Quarter: 2022Q3

REPORT INFORMATION
  Report Type: Report from Study
  Country: US (occurrence: US)
  Receive Date: 20220831
  Receipt Date: 20220831
  Transmission Date: 20221027
  Serious: Yes (Hospitalization)
  Sender: FDA-Public Use
  Company Number: US-AMERICAN REGENT INC-2022000014

PATIENT
  Age: 82 Year
  Sex: Male
  Weight: 48.8 kg

DRUGS (32)
  1. INVESTIGATIONAL PRODUCT [Suspect]
     Active Substance: INVESTIGATIONAL PRODUCT
     Indication: Cardiac failure
     Dosage: UNK, SINGLE
     Route: 042
     Dates: start: 20190125, end: 20190125
  2. PLACEBO [Suspect]
     Active Substance: UNSPECIFIED INGREDIENT
     Indication: Cardiac failure
     Dosage: UNK, SINGLE
     Route: 042
     Dates: start: 20190125, end: 20190125
  3. INVESTIGATIONAL PRODUCT [Suspect]
     Active Substance: INVESTIGATIONAL PRODUCT
     Indication: Iron deficiency
     Dosage: UNK, SINGLE
     Route: 042
     Dates: start: 20190131, end: 20190131
  4. PLACEBO [Suspect]
     Active Substance: UNSPECIFIED INGREDIENT
     Indication: Iron deficiency
     Dosage: UNK, SINGLE
     Route: 042
     Dates: start: 20190131, end: 20190131
  5. INVESTIGATIONAL PRODUCT [Suspect]
     Active Substance: INVESTIGATIONAL PRODUCT
     Dosage: UNK, SINGLE
     Route: 042
     Dates: start: 20190801, end: 20190801
  6. PLACEBO [Suspect]
     Active Substance: UNSPECIFIED INGREDIENT
     Dosage: UNK, SINGLE
     Route: 042
     Dates: start: 20190801, end: 20190801
  7. INVESTIGATIONAL PRODUCT [Suspect]
     Active Substance: INVESTIGATIONAL PRODUCT
     Dosage: UNK, SINGLE
     Route: 042
     Dates: start: 20190808, end: 20190808
  8. PLACEBO [Suspect]
     Active Substance: UNSPECIFIED INGREDIENT
     Dosage: UNK, SINGLE
     Route: 042
     Dates: start: 20190808, end: 20190808
  9. INVESTIGATIONAL PRODUCT [Suspect]
     Active Substance: INVESTIGATIONAL PRODUCT
     Dosage: UNK, SINGLE
     Route: 042
     Dates: start: 20200116, end: 20200116
  10. PLACEBO [Suspect]
     Active Substance: UNSPECIFIED INGREDIENT
     Dosage: UNK, SINGLE
     Route: 042
     Dates: start: 20200116, end: 20200116
  11. INVESTIGATIONAL PRODUCT [Suspect]
     Active Substance: INVESTIGATIONAL PRODUCT
     Dosage: UNK, SINGLE
     Route: 042
     Dates: start: 20200123, end: 20200123
  12. PLACEBO [Suspect]
     Active Substance: UNSPECIFIED INGREDIENT
     Dosage: UNK, SINGLE
     Route: 042
     Dates: start: 20200123, end: 20200123
  13. INVESTIGATIONAL PRODUCT [Suspect]
     Active Substance: INVESTIGATIONAL PRODUCT
     Dosage: UNK, SINGLE
     Route: 042
     Dates: start: 20200728, end: 20200728
  14. PLACEBO [Suspect]
     Active Substance: UNSPECIFIED INGREDIENT
     Dosage: UNK, SINGLE
     Route: 042
     Dates: start: 20200728, end: 20200728
  15. INVESTIGATIONAL PRODUCT [Suspect]
     Active Substance: INVESTIGATIONAL PRODUCT
     Dosage: UNK, SINGLE
     Route: 042
     Dates: start: 20200804, end: 20200804
  16. PLACEBO [Suspect]
     Active Substance: UNSPECIFIED INGREDIENT
     Dosage: UNK, SINGLE
     Route: 042
     Dates: start: 20200804, end: 20200804
  17. INVESTIGATIONAL PRODUCT [Suspect]
     Active Substance: INVESTIGATIONAL PRODUCT
     Dosage: UNK, SINGLE
     Route: 042
     Dates: start: 20210708, end: 20210708
  18. PLACEBO [Suspect]
     Active Substance: UNSPECIFIED INGREDIENT
     Dosage: UNK, SINGLE
     Route: 042
     Dates: start: 20210708, end: 20210708
  19. INVESTIGATIONAL PRODUCT [Suspect]
     Active Substance: INVESTIGATIONAL PRODUCT
     Dosage: UNK, SINGLE
     Route: 042
     Dates: start: 20210715, end: 20210715
  20. PLACEBO [Suspect]
     Active Substance: UNSPECIFIED INGREDIENT
     Dosage: UNK, SINGLE
     Route: 042
     Dates: start: 20210715, end: 20210715
  21. AMBIEN [Concomitant]
     Active Substance: ZOLPIDEM TARTRATE
     Indication: Insomnia
  22. APIXABAN [Concomitant]
     Active Substance: APIXABAN
     Indication: Atrial fibrillation
  23. APIXABAN [Concomitant]
     Active Substance: APIXABAN
     Indication: Coronary artery disease
  24. ATORVASTATIN [Concomitant]
     Active Substance: ATORVASTATIN
     Indication: Coronary artery disease
  25. ATORVASTATIN [Concomitant]
     Active Substance: ATORVASTATIN
     Indication: Hyperlipidaemia
  26. CLONAZEPAM [Concomitant]
     Active Substance: CLONAZEPAM
     Indication: Anxiety
  27. COREG [Concomitant]
     Active Substance: CARVEDILOL
     Indication: Cardiomyopathy
  28. DEXILANT [Concomitant]
     Active Substance: DEXLANSOPRAZOLE
     Indication: Gastrooesophageal reflux disease
  29. ENTRESTO [Concomitant]
     Active Substance: SACUBITRIL\VALSARTAN
     Indication: Cardiac failure congestive
  30. GLIPIZIDE [Concomitant]
     Active Substance: GLIPIZIDE
     Indication: Diabetes mellitus
  31. LASIX [Concomitant]
     Active Substance: FUROSEMIDE
     Indication: Cardiac failure congestive
  32. POTASSIUM CHLORIDE [Concomitant]
     Active Substance: POTASSIUM CHLORIDE
     Indication: Supplementation therapy

REACTIONS (2)
  - Asthenia [Recovered/Resolved]
  - Sepsis [Recovered/Resolved]

NARRATIVE: CASE EVENT DATE: 20211028
